FAERS Safety Report 7131273-2 (Version None)
Quarter: 2010Q4

REPORT INFORMATION
  Report Type: 
  Country: None (occurrence: None)
  Receive Date: 20101201
  Receipt Date: 20101119
  Transmission Date: 20110411
  Serious: Yes (Hospitalization)
  Sender: FDA-Public Use
  Company Number: PH-EISAI INC.-E2090-01294-SPO-PH

PATIENT
  Age: 20 Year
  Sex: Male
  Weight: 55 kg

DRUGS (5)
  1. ZONEGRAN [Suspect]
     Route: 048
     Dates: start: 20100817, end: 20100823
  2. ZONEGRAN [Interacting]
     Route: 048
     Dates: start: 20100824, end: 20100827
  3. PHENOBARBITAL [Interacting]
     Route: 048
  4. VALPROIC ACID [Interacting]
     Route: 048
  5. LAMOTRIGINE [Concomitant]
     Route: 048
     Dates: start: 20100701, end: 20100817

REACTIONS (4)
  - DECREASED APPETITE [None]
  - DRUG INTERACTION [None]
  - MALAISE [None]
  - PYREXIA [None]
